FAERS Safety Report 13472483 (Version 1)
Quarter: 2017Q2

REPORT INFORMATION
  Report Type: Spontaneous
  Country: US (occurrence: US)
  Receive Date: 20170422
  Receipt Date: 20170422
  Transmission Date: 20170830
  Serious: No
  Sender: FDA-Public Use
  Company Number: None

PATIENT
  Age: 71 Year
  Sex: Female
  Weight: 74.25 kg

DRUGS (2)
  1. CENTRUM MULTI VIT/MINERALS [Concomitant]
     Active Substance: MINERALS\VITAMINS
  2. EDARBI [Suspect]
     Active Substance: AZILSARTAN KAMEDOXOMIL
     Indication: HYPERTENSION
     Dosage: ?          QUANTITY:1 TABLET(S);?
     Route: 048
     Dates: start: 20160901, end: 20170420

REACTIONS (3)
  - Blood pressure decreased [None]
  - Dry mouth [None]
  - Asthenia [None]

NARRATIVE: CASE EVENT DATE: 20161225
